FAERS Safety Report 18603408 (Version 1)
Quarter: 2020Q4

REPORT INFORMATION
  Report Type: Spontaneous
  Country: US (occurrence: US)
  Receive Date: 20201210
  Receipt Date: 20201210
  Transmission Date: 20210114
  Serious: Yes (Hospitalization)
  Sender: FDA-Public Use
  Company Number: US-JNJFOC-20201203018

PATIENT
  Age: 31 Year
  Sex: Male

DRUGS (2)
  1. IMODIUM [Suspect]
     Active Substance: LOPERAMIDE HYDROCHLORIDE
     Indication: ABDOMINAL PAIN
  2. IMODIUM [Suspect]
     Active Substance: LOPERAMIDE HYDROCHLORIDE
     Indication: DIARRHOEA
     Route: 065

REACTIONS (6)
  - Drug abuse [Unknown]
  - Overdose [Unknown]
  - Ventricular tachycardia [Recovered/Resolved]
  - Intentional product misuse [Unknown]
  - Ventricular arrhythmia [Recovered/Resolved]
  - Electrocardiogram QT prolonged [Unknown]
